FAERS Safety Report 17242823 (Version 4)
Quarter: 2020Q2

REPORT INFORMATION
  Report Type: Spontaneous
  Country: US (occurrence: US)
  Receive Date: 20200107
  Receipt Date: 20200528
  Transmission Date: 20200713
  Serious: No
  Sender: FDA-Public Use
  Company Number: US-JNJFOC-20191241012

PATIENT
  Sex: Female
  Weight: 86.71 kg

DRUGS (10)
  1. INVOKANA [Suspect]
     Active Substance: CANAGLIFLOZIN
     Route: 048
     Dates: start: 2019
  2. GLUCOPHAGE [Concomitant]
     Active Substance: METFORMIN HYDROCHLORIDE
     Indication: TYPE 2 DIABETES MELLITUS
  3. DIOVAN [Concomitant]
     Active Substance: VALSARTAN
     Dosage: 15 YEARS
  4. INVOKANA [Suspect]
     Active Substance: CANAGLIFLOZIN
     Route: 048
     Dates: start: 201912
  5. INVOKANA [Suspect]
     Active Substance: CANAGLIFLOZIN
     Indication: TYPE 2 DIABETES MELLITUS
     Route: 048
     Dates: start: 2016
  6. HYDROCHLOROTHIAZIDE. [Concomitant]
     Active Substance: HYDROCHLOROTHIAZIDE
     Dosage: 15 YEARS
  7. INVOKANA [Suspect]
     Active Substance: CANAGLIFLOZIN
     Dosage: PATIENT WAS PRESCRIBED 300 MG OF THE MEDICATION BUT COULD NOT TAKE IT AND WAS TAKING 200 MG DAILY
     Route: 048
  8. PRAVASTATIN. [Concomitant]
     Active Substance: PRAVASTATIN
  9. SYNTHROID [Concomitant]
     Active Substance: LEVOTHYROXINE SODIUM
     Dosage: 30 YEARS
  10. HYDROCHLOROTHIAZIDE. [Concomitant]
     Active Substance: HYDROCHLOROTHIAZIDE

REACTIONS (5)
  - Urinary tract infection [Unknown]
  - Weight increased [Unknown]
  - Incorrect dose administered [Unknown]
  - Off label use [Unknown]
  - Neuralgia [Unknown]

NARRATIVE: CASE EVENT DATE: 2019
